FAERS Safety Report 6192258-6 (Version None)
Quarter: 2009Q2

REPORT INFORMATION
  Report Type: 
  Country: None (occurrence: None)
  Receive Date: 20090515
  Receipt Date: 20090505
  Transmission Date: 20091009
  Serious: Yes (Hospitalization)
  Sender: FDA-Public Use
  Company Number: PHHY2009NZ17349

PATIENT
  Sex: Male

DRUGS (2)
  1. EXELON [Suspect]
     Indication: DEMENTIA
     Route: 062
  2. EXELON [Suspect]
     Dosage: 40 PATCHES ON BODY
     Route: 062

REACTIONS (3)
  - AGGRESSION [None]
  - AGITATION [None]
  - INCORRECT DOSE ADMINISTERED [None]
